FAERS Safety Report 4326172-5 (Version None)
Quarter: 2004Q1

REPORT INFORMATION
  Report Type: 
  Country: None (occurrence: None)
  Receive Date: 20040324
  Receipt Date: 20040319
  Transmission Date: 20041129
  Serious: Yes (Life-Threatening)
  Sender: FDA-Public Use
  Company Number: 236020

PATIENT
  Age: 55 Year
  Sex: Female

DRUGS (1)
  1. NOVOMIX 30 FLEXPEN(INSULIN ASPART) SUSPENSION FOR INJECTION, 100U/ML [Suspect]
     Indication: DIABETES MELLITUS INSULIN-DEPENDENT

REACTIONS (7)
  - BLOOD GLUCOSE DECREASED [None]
  - MALAISE [None]
  - NAUSEA [None]
  - SYNCOPE [None]
  - TINNITUS [None]
  - VERTIGO [None]
  - VOMITING [None]
